FAERS Safety Report 13489692 (Version 1)
Quarter: 2017Q2

REPORT INFORMATION
  Report Type: Spontaneous
  Country: US (occurrence: US)
  Receive Date: 20170427
  Receipt Date: 20170427
  Transmission Date: 20170830
  Serious: Yes (Hospitalization)
  Sender: FDA-Public Use
  Company Number: None

PATIENT
  Age: 33 Year
  Sex: Male

DRUGS (1)
  1. SULFAMETHOXAZOLE/TRIMETHOPRIM [Suspect]
     Active Substance: SULFAMETHOXAZOLE\TRIMETHOPRIM
     Indication: INFECTION
     Route: 048
     Dates: start: 20170125, end: 20170212

REACTIONS (5)
  - Rash [None]
  - Rash generalised [None]
  - Lip exfoliation [None]
  - Stevens-Johnson syndrome [None]
  - Rash pruritic [None]

NARRATIVE: CASE EVENT DATE: 20170212
